FAERS Safety Report 24121002 (Version 1)
Quarter: 2024Q3

REPORT INFORMATION
  Report Type: Spontaneous
  Country: US (occurrence: US)
  Receive Date: 20240722
  Receipt Date: 20240722
  Transmission Date: 20241017
  Serious: No
  Sender: PFIZER
  Company Number: US-PFIZER INC-PV202400093310

PATIENT

DRUGS (8)
  1. HYDROXYZINE PAMOATE [Suspect]
     Active Substance: HYDROXYZINE PAMOATE
     Indication: Urticaria cholinergic
  2. METHYLPREDNISOLONE [Suspect]
     Active Substance: METHYLPREDNISOLONE
     Indication: Urticaria cholinergic
     Dosage: BEEN ON MULTIPLE TIMES
  3. XOLAIR [Suspect]
     Active Substance: OMALIZUMAB
     Indication: Urticaria cholinergic
     Dosage: UNK, MONTHLY
  4. PREDNISONE [Suspect]
     Active Substance: PREDNISONE
     Indication: Urticaria cholinergic
     Dosage: BEEN ON MULTIPLE TIMES
  5. SINGULAIR [Suspect]
     Active Substance: MONTELUKAST SODIUM
     Indication: Urticaria cholinergic
  6. ZYRTEC [Suspect]
     Active Substance: CETIRIZINE HYDROCHLORIDE
     Indication: Urticaria cholinergic
  7. FAMOTIDINE [Suspect]
     Active Substance: FAMOTIDINE
     Indication: Urticaria cholinergic
  8. ZOLOFT [Suspect]
     Active Substance: SERTRALINE HYDROCHLORIDE
     Indication: Urticaria cholinergic

REACTIONS (1)
  - Drug ineffective [Unknown]
